FAERS Safety Report 9508180 (Version 1)
Quarter: 2013Q3

REPORT INFORMATION
  Report Type: Spontaneous
  Country: US (occurrence: None)
  Receive Date: 20130906
  Receipt Date: 20130906
  Transmission Date: 20140515
  Serious: Yes (Hospitalization)
  Sender: FDA-Public Use
  Company Number: None

PATIENT
  Age: 7 Year
  Sex: Male
  Weight: 20.7 kg

DRUGS (2)
  1. CYTARABINE [Suspect]
     Dates: end: 20130825
  2. ASPARAGINASE [Suspect]
     Dates: end: 20130825

REACTIONS (14)
  - Pain in extremity [None]
  - Pyrexia [None]
  - Tachypnoea [None]
  - Lethargy [None]
  - Hypotension [None]
  - Streptococcus test positive [None]
  - Platelet count decreased [None]
  - Neutrophil count decreased [None]
  - Haemoglobin decreased [None]
  - Oxygen saturation decreased [None]
  - Breath sounds abnormal [None]
  - Vomiting [None]
  - Abasia [None]
  - Abdominal pain [None]
